FAERS Safety Report 21512521 (Version 4)
Quarter: 2023Q2

REPORT INFORMATION
  Report Type: Spontaneous
  Country: US (occurrence: US)
  Receive Date: 20221027
  Receipt Date: 20230509
  Transmission Date: 20230721
  Serious: No
  Sender: FDA-Public Use
  Company Number: US-BRISTOL-MYERS SQUIBB COMPANY-2022-127276

PATIENT
  Age: 78 Year
  Sex: Female
  Weight: 101.15 kg

DRUGS (4)
  1. POMALYST [Suspect]
     Active Substance: POMALIDOMIDE
     Indication: Plasma cell myeloma
     Route: 048
     Dates: start: 20220901
  2. POMALYST [Suspect]
     Active Substance: POMALIDOMIDE
     Indication: Plasma cell myeloma
     Dosage: FREQ: 21D ON 7D OFF
     Route: 048
     Dates: start: 20220801
  3. POMALYST [Suspect]
     Active Substance: POMALIDOMIDE
     Dosage: FREQ: FOR 21DAYS
     Route: 048
     Dates: start: 20221001
  4. POMALYST [Suspect]
     Active Substance: POMALIDOMIDE
     Route: 048

REACTIONS (2)
  - Full blood count decreased [Unknown]
  - Dyspnoea [Recovering/Resolving]

NARRATIVE: CASE EVENT DATE: 20221020
